FAERS Safety Report 7159551-1 (Version None)
Quarter: 2010Q4

REPORT INFORMATION
  Report Type: 
  Country: None (occurrence: None)
  Receive Date: 20101214
  Receipt Date: 20100920
  Transmission Date: 20110411
  Serious: No
  Sender: FDA-Public Use
  Company Number: US-ASTRAZENECA-2010SE44257

PATIENT
  Age: 79 Year
  Sex: Female

DRUGS (3)
  1. CRESTOR [Suspect]
     Indication: HYPERCHOLESTEROLAEMIA
     Route: 048
     Dates: start: 20100301
  2. GLIPIZIDE [Concomitant]
  3. COREG [Concomitant]

REACTIONS (2)
  - ALOPECIA [None]
  - MYALGIA [None]
